FAERS Safety Report 19233174 (Version 1)
Quarter: 2021Q2

REPORT INFORMATION
  Report Type: Spontaneous
  Country: US (occurrence: US)
  Receive Date: 20210507
  Receipt Date: 20210507
  Transmission Date: 20210717
  Serious: No
  Sender: FDA-Public Use
  Company Number: US-MAYNE PHARMA-2020MYN000625

PATIENT

DRUGS (1)
  1. FLUOROURACIL. [Suspect]
     Active Substance: FLUOROURACIL
     Indication: HYPERKERATOSIS
     Dosage: 5 %, BID
     Route: 061
     Dates: start: 20201218, end: 20201229

REACTIONS (6)
  - Application site swelling [Not Recovered/Not Resolved]
  - Insomnia [Not Recovered/Not Resolved]
  - Application site erythema [Not Recovered/Not Resolved]
  - Irritability [Not Recovered/Not Resolved]
  - Application site pain [Not Recovered/Not Resolved]
  - Skin weeping [Not Recovered/Not Resolved]
